FAERS Safety Report 11752987 (Version 2)
Quarter: 2016Q4

REPORT INFORMATION
  Report Type: Report from Study
  Country: US (occurrence: US)
  Receive Date: 20151119
  Receipt Date: 20161201
  Transmission Date: 20170206
  Serious: No
  Sender: FDA-Public Use
  Company Number: PHEH2015US024011

PATIENT
  Sex: Female
  Weight: 49.89 kg

DRUGS (1)
  1. GILENYA [Suspect]
     Active Substance: FINGOLIMOD HYDROCHLORIDE
     Indication: MULTIPLE SCLEROSIS
     Dosage: 0.5 MG, QD
     Route: 048
     Dates: start: 20140702

REACTIONS (8)
  - Thinking abnormal [Unknown]
  - Vertigo [Unknown]
  - Anxiety [Unknown]
  - Memory impairment [Unknown]
  - Confusional state [Unknown]
  - Depression [Unknown]
  - Weight decreased [Unknown]
  - Concomitant disease aggravated [Unknown]
